FAERS Safety Report 21954206 (Version 1)
Quarter: 2023Q1

REPORT INFORMATION
  Report Type: Report from Study
  Country: US (occurrence: US)
  Receive Date: 20230204
  Receipt Date: 20230204
  Transmission Date: 20230417
  Serious: No
  Sender: FDA-Public Use
  Company Number: US-BIOGEN-2019BI00741762

PATIENT
  Age: 64 Year
  Sex: Female

DRUGS (11)
  1. AMPYRA [Suspect]
     Active Substance: DALFAMPRIDINE
     Indication: Multiple sclerosis
     Dosage: 10 MILLIGRAM, BID
     Route: 048
     Dates: start: 20150201
  2. PLEGRIDY [Suspect]
     Active Substance: PEGINTERFERON BETA-1A
     Indication: Multiple sclerosis
     Dosage: 63 MICROGRAM
     Route: 065
     Dates: start: 20150109, end: 20150109
  3. PLEGRIDY [Suspect]
     Active Substance: PEGINTERFERON BETA-1A
     Dosage: 94 MICROGRAM
     Route: 065
     Dates: start: 20150123, end: 20150123
  4. PLEGRIDY [Suspect]
     Active Substance: PEGINTERFERON BETA-1A
     Dosage: 125 MICROGRAM
     Route: 065
     Dates: start: 20150206
  5. AMANTADINE HYDROCHLORIDE [Concomitant]
     Active Substance: AMANTADINE HYDROCHLORIDE
     Indication: Multiple sclerosis
     Dosage: 100 MILLIGRAM, TID
     Route: 048
     Dates: start: 20110201
  6. GABAPENTIN [Concomitant]
     Active Substance: GABAPENTIN
     Indication: Multiple sclerosis
     Dosage: 900 MILLIGRAM, TID
     Route: 048
     Dates: start: 20110201
  7. OXYBUTYNIN [Concomitant]
     Active Substance: OXYBUTYNIN
     Indication: Multiple sclerosis
     Dosage: 10 MILLIGRAM, QD
     Route: 048
     Dates: start: 20110701
  8. BIOTIN [Concomitant]
     Active Substance: BIOTIN
     Indication: Multiple sclerosis
     Dosage: 7500 MICROGRAM, QD
     Route: 048
     Dates: start: 20151213
  9. CHOLECALCIFEROL [Concomitant]
     Active Substance: CHOLECALCIFEROL
     Indication: Multiple sclerosis
     Dosage: 2000 INTERNATIONAL UNIT, QD
     Route: 048
     Dates: start: 20120101
  10. MOTRIN [Concomitant]
     Active Substance: IBUPROFEN
     Indication: Product used for unknown indication
     Dosage: 200 MILLIGRAM
     Route: 048
  11. VITAMIN B12 [Concomitant]
     Active Substance: CYANOCOBALAMIN
     Indication: Product used for unknown indication
     Dosage: 1000 MICROGRAM, QD
     Route: 048
     Dates: start: 19990101

REACTIONS (1)
  - Injection site reaction [Recovered/Resolved]

NARRATIVE: CASE EVENT DATE: 20151213
